FAERS Safety Report 9034772 (Version 2)
Quarter: 2013Q1

REPORT INFORMATION
  Report Type: Spontaneous
  Country: AU (occurrence: None)
  Receive Date: 20130110
  Receipt Date: 20130114
  Transmission Date: 20140127
  Serious: Yes (Hospitalization, Other)
  Sender: FDA-Public Use
  Company Number: AUR-APL-2013-00031

PATIENT
  Age: 65 Year
  Sex: Male

DRUGS (7)
  1. METFORMIN (METFORMIN) [Suspect]
     Indication: PRODUCT USED FOR UNKNOWN INDICATION
  2. TRANDOLAPRIL [Suspect]
  3. SPIRONOLACTONE (SPIRONOLACTONE) [Suspect]
  4. PRE-MIXED INSULIN (INSULIN) [Concomitant]
  5. ATENOLOL (ATENOLOL) [Concomitant]
  6. FRUSEMIDE (FUROSEMIDE) [Concomitant]
  7. WARFARIN (WARFARIN) [Concomitant]

REACTIONS (3)
  - Cardio-respiratory arrest [None]
  - Hypothermia [None]
  - Hyperkalaemia [None]
